FAERS Safety Report 6400486-7 (Version None)
Quarter: 2009Q4

REPORT INFORMATION
  Report Type: 
  Country: None (occurrence: None)
  Receive Date: 20091007
  Receipt Date: 20091007
  Transmission Date: 20100525
  Serious: Yes (Other)
  Sender: FDA-Public Use
  Company Number: None

PATIENT
  Age: 28 Year
  Sex: Male
  Weight: 129.2752 kg

DRUGS (10)
  1. LAMOTRIGINE [Suspect]
     Indication: TRIGEMINAL NEURALGIA
     Dosage: 100 MG BID PO
     Route: 048
     Dates: start: 20091002, end: 20091006
  2. TRILEPTAL [Concomitant]
  3. WELLBUTRIN [Concomitant]
  4. INDERAL LA [Concomitant]
  5. KLONOPIN [Concomitant]
  6. PRILOSEC [Concomitant]
  7. ALTACE [Concomitant]
  8. HYDROCHLOROTHIAZIDE [Concomitant]
  9. ALLEGRA [Concomitant]
  10. REMERON [Concomitant]

REACTIONS (4)
  - OFF LABEL USE [None]
  - PRODUCT MEASURED POTENCY ISSUE [None]
  - PRODUCT QUALITY ISSUE [None]
  - TRIGEMINAL NEURALGIA [None]
